FAERS Safety Report 7279383-3 (Version None)
Quarter: 2011Q1

REPORT INFORMATION
  Report Type: 
  Country: None (occurrence: None)
  Receive Date: 20110203
  Receipt Date: 20110203
  Transmission Date: 20110831
  Serious: Yes (Other)
  Sender: FDA-Public Use
  Company Number: None

PATIENT
  Age: 39 Year
  Sex: Female
  Weight: 58.514 kg

DRUGS (2)
  1. YAZ [Suspect]
     Indication: CONTRACEPTION
     Dates: start: 20080301, end: 20091101
  2. YAZ [Suspect]
     Indication: ACNE
     Dates: start: 20080301, end: 20091101

REACTIONS (1)
  - HEPATIC ADENOMA [None]
